FAERS Safety Report 5606087-2 (Version None)
Quarter: 2008Q1

REPORT INFORMATION
  Report Type: 
  Country: None (occurrence: None)
  Receive Date: 20080123
  Receipt Date: 20080123
  Transmission Date: 20080703
  Serious: Yes (Life-Threatening, Hospitalization)
  Sender: FDA-Public Use
  Company Number: None

PATIENT
  Age: 25 Year
  Sex: Female
  Weight: 104.3273 kg

DRUGS (2)
  1. DEPO-PROVERA [Suspect]
     Indication: CONTRACEPTION
     Dosage: 150 MG 1 X 3 MO SQ
     Route: 058
     Dates: start: 20020822, end: 20060721
  2. DEPO-PROVERA [Suspect]
     Indication: DYSMENORRHOEA
     Dosage: 150 MG 1 X 3 MO SQ
     Route: 058
     Dates: start: 20020822, end: 20060721

REACTIONS (18)
  - CEREBRAL HAEMORRHAGE [None]
  - COGNITIVE DISORDER [None]
  - CONVULSION [None]
  - DYSARTHRIA [None]
  - FEELING ABNORMAL [None]
  - GAIT DISTURBANCE [None]
  - HEADACHE [None]
  - HUNGER [None]
  - HYPERCOAGULATION [None]
  - IRRITABILITY [None]
  - LOSS OF CONSCIOUSNESS [None]
  - MIGRAINE [None]
  - PARAESTHESIA [None]
  - SENSORY LOSS [None]
  - SPEECH DISORDER [None]
  - THROMBOSIS [None]
  - UNEMPLOYMENT [None]
  - WEIGHT INCREASED [None]
